FAERS Safety Report 19072276 (Version 9)
Quarter: 2024Q3

REPORT INFORMATION
  Report Type: Report from Study
  Country: US (occurrence: US)
  Receive Date: 20210330
  Receipt Date: 20240731
  Transmission Date: 20241016
  Serious: Yes (Other)
  Sender: NOVARTIS
  Company Number: NVSC2021US064227

PATIENT
  Sex: Female
  Weight: 91.61 kg

DRUGS (2)
  1. ENTRESTO [Suspect]
     Active Substance: SACUBITRIL\VALSARTAN
     Indication: Product used for unknown indication
     Dosage: UNK
     Route: 065
  2. ENTRESTO [Suspect]
     Active Substance: SACUBITRIL\VALSARTAN
     Dosage: UNK UNK, QD
     Route: 065

REACTIONS (11)
  - Diabetes mellitus [Unknown]
  - Cardiac disorder [Unknown]
  - Blood pressure abnormal [Unknown]
  - Poor peripheral circulation [Unknown]
  - Ill-defined disorder [Unknown]
  - Hot flush [Unknown]
  - Weight decreased [Unknown]
  - Chest pain [Unknown]
  - Back pain [Not Recovered/Not Resolved]
  - Amnesia [Unknown]
  - Product use issue [Unknown]
